FAERS Safety Report 9143890 (Version 1)
Quarter: 2013Q1

REPORT INFORMATION
  Report Type: Report from Study
  Country: US (occurrence: US)
  Receive Date: 20130306
  Receipt Date: 20130306
  Transmission Date: 20140127
  Serious: Yes (Death, Life-Threatening)
  Sender: FDA-Public Use
  Company Number: US-ROCHE-1192939

PATIENT
  Age: 63 Year
  Sex: Male
  Weight: 82.2 kg

DRUGS (5)
  1. BEVACIZUMAB [Suspect]
     Indication: COLORECTAL CANCER METASTATIC
     Route: 042
     Dates: start: 20121105, end: 20130212
  2. LEUCOVORIN [Suspect]
     Indication: COLORECTAL CANCER METASTATIC
     Dosage: DOSE: 400MG/M2
     Route: 042
     Dates: start: 20121105, end: 20130212
  3. OXALIPLATIN [Suspect]
     Indication: COLORECTAL CANCER METASTATIC
     Dosage: DOSE: 85 MG/M2
     Route: 042
     Dates: start: 20121105, end: 20130212
  4. FLUOROURACIL [Suspect]
     Indication: COLORECTAL CANCER METASTATIC
     Dosage: DOSE: 400 MG/M2
     Route: 040
     Dates: start: 20121105, end: 20130212
  5. FLUOROURACIL [Suspect]
     Dosage: DOSE: 2400 MG/M2
     Route: 041
     Dates: start: 20121105, end: 20130214

REACTIONS (2)
  - Pneumoperitoneum [Fatal]
  - Ileal perforation [Fatal]
